FAERS Safety Report 7960288 (Version 6)
Quarter: 2018Q1

REPORT INFORMATION
  Report Type: Spontaneous
  Country: US (occurrence: US)
  Receive Date: 20110525
  Receipt Date: 20180321
  Transmission Date: 20180509
  Serious: Yes (Hospitalization)
  Sender: FDA-Public Use
  Company Number: US-ASTRAZENECA-2011SE30333

PATIENT
  Age: 22685 Day
  Sex: Female
  Weight: 81.6 kg

DRUGS (78)
  1. CRESTOR [Suspect]
     Active Substance: ROSUVASTATIN CALCIUM
     Route: 048
  2. TUDORZA PRESSAIR [Suspect]
     Active Substance: ACLIDINIUM BROMIDE
     Indication: CHRONIC OBSTRUCTIVE PULMONARY DISEASE
     Route: 055
     Dates: start: 201508
  3. PLAVIX [Concomitant]
     Active Substance: CLOPIDOGREL BISULFATE
     Route: 048
     Dates: start: 20110125
  4. GABAPENTIN. [Concomitant]
     Active Substance: GABAPENTIN
     Route: 048
     Dates: start: 20110812
  5. FOLIC ACID. [Concomitant]
     Active Substance: FOLIC ACID
     Route: 048
     Dates: start: 20110627, end: 20110627
  6. ALPRAZOLAM. [Concomitant]
     Active Substance: ALPRAZOLAM
     Dosage: TAKE 1 TABLET BY MOUTH EVERY 6 HOURS AS NEEDED
     Route: 048
     Dates: start: 20110124
  7. GEMFIBROZIL. [Concomitant]
     Active Substance: GEMFIBROZIL
     Route: 048
     Dates: start: 20110124, end: 20110802
  8. SM SALINE NASAL SPR [Concomitant]
     Route: 045
     Dates: start: 20110124
  9. METFORMIN HYDROCHLORIDE. [Concomitant]
     Active Substance: METFORMIN HYDROCHLORIDE
     Route: 048
     Dates: start: 20110131
  10. WARFARIN [Concomitant]
     Active Substance: WARFARIN
     Dosage: TAKE 0.5 TABLET ONCE DAILY OR AS DIRECTED
     Route: 048
     Dates: start: 20110208, end: 20110909
  11. WARFARIN [Concomitant]
     Active Substance: WARFARIN
     Dosage: TAKE 4.5 MG BY MOUTH DAILY AS DIRECTED
     Route: 048
     Dates: start: 20110708
  12. AZITHROMYCIN ANHYDROUS. [Concomitant]
     Active Substance: AZITHROMYCIN ANHYDROUS
     Dosage: TAKE 2 TABLETS NOW, THEN TAKE 1 TABLET EACH DAY FOR 4 DAYS
     Dates: start: 20110616
  13. METHYLPREDNISOLONE. [Concomitant]
     Active Substance: METHYLPREDNISOLONE
     Dosage: USE AS DIRECTED
     Dates: start: 20110616
  14. TUDORZA PRESSAIR [Suspect]
     Active Substance: ACLIDINIUM BROMIDE
     Indication: CHRONIC OBSTRUCTIVE PULMONARY DISEASE
     Route: 055
     Dates: start: 20171223
  15. PLAVIX [Concomitant]
     Active Substance: CLOPIDOGREL BISULFATE
     Route: 048
     Dates: start: 20110627
  16. PLAVIX [Concomitant]
     Active Substance: CLOPIDOGREL BISULFATE
     Route: 048
     Dates: start: 20110825
  17. METFORMIN [Concomitant]
     Active Substance: METFORMIN HYDROCHLORIDE
     Dates: start: 20100310
  18. CHERATUSSIN AC SYRUP [Concomitant]
     Dosage: 100-10 MG/5, TAKE 2 TEASPOONSFUL BY MOUTH EVERY 4 HOURS AS NEEDED - TAKE WITH 8OZ OF WAT
     Route: 048
     Dates: start: 20110112
  19. ALPRAZOLAM. [Concomitant]
     Active Substance: ALPRAZOLAM
     Dosage: TAKE 1 TABLET BY MOUTH EVERY 6 HOURS AS NEEDED
     Route: 048
     Dates: start: 20110315
  20. METFORMIN HYDROCHLORIDE. [Concomitant]
     Active Substance: METFORMIN HYDROCHLORIDE
     Route: 048
     Dates: start: 20110802
  21. WARFARIN [Concomitant]
     Active Substance: WARFARIN
     Dosage: TAKE 0.5 TABLET ONCE DAILY OR AS DIRECTED
     Route: 048
     Dates: start: 20110708, end: 20110909
  22. NITROFURANTOIN. [Concomitant]
     Active Substance: NITROFURANTOIN
     Dates: start: 20110517
  23. CRESTOR [Suspect]
     Active Substance: ROSUVASTATIN CALCIUM
     Route: 048
     Dates: start: 20110513, end: 20110628
  24. METOPROLOL. [Suspect]
     Active Substance: METOPROLOL
     Route: 048
     Dates: start: 20110509
  25. LISINOPRIL. [Suspect]
     Active Substance: LISINOPRIL
     Dates: start: 20110110
  26. PLAVIX [Concomitant]
     Active Substance: CLOPIDOGREL BISULFATE
     Route: 048
     Dates: start: 20110401
  27. XANAX [Concomitant]
     Active Substance: ALPRAZOLAM
     Dosage: 5.0MG AS REQUIRED
     Dates: start: 20100310
  28. SERTRALINE HYDROCHLORIDE. [Concomitant]
     Active Substance: SERTRALINE HYDROCHLORIDE
     Route: 048
     Dates: start: 20110513
  29. PLAVIX [Concomitant]
     Active Substance: CLOPIDOGREL BISULFATE
     Route: 048
     Dates: start: 20110602
  30. COUMADIN [Concomitant]
     Active Substance: WARFARIN SODIUM
     Dates: start: 20100310
  31. GABAPENTIN. [Concomitant]
     Active Substance: GABAPENTIN
     Route: 048
     Dates: start: 20110216
  32. LOPID [Concomitant]
     Active Substance: GEMFIBROZIL
     Dates: start: 20100310
  33. GEMFIBROZIL. [Concomitant]
     Active Substance: GEMFIBROZIL
     Route: 048
     Dates: start: 20110428, end: 20110802
  34. GEMFIBROZIL. [Concomitant]
     Active Substance: GEMFIBROZIL
     Route: 048
     Dates: start: 20110802
  35. GLIPIZIDE. [Concomitant]
     Active Substance: GLIPIZIDE
     Route: 048
     Dates: start: 20110124
  36. METFORMIN HYDROCHLORIDE. [Concomitant]
     Active Substance: METFORMIN HYDROCHLORIDE
     Route: 048
     Dates: start: 20110429
  37. WARFARIN [Concomitant]
     Active Substance: WARFARIN
     Route: 048
     Dates: start: 20110209, end: 20110323
  38. SERTRALINE HYDROCHLORIDE. [Concomitant]
     Active Substance: SERTRALINE HYDROCHLORIDE
     Route: 048
     Dates: start: 20110216
  39. RANITIDINE. [Concomitant]
     Active Substance: RANITIDINE
     Route: 048
     Dates: start: 20110719
  40. NITROGLYCERIN. [Concomitant]
     Active Substance: NITROGLYCERIN
     Dosage: 0.4MG AS REQUIRED
     Dates: start: 20100310
  41. CRESTOR [Suspect]
     Active Substance: ROSUVASTATIN CALCIUM
     Route: 048
     Dates: start: 20110118, end: 20110628
  42. METOPROLOL. [Suspect]
     Active Substance: METOPROLOL
     Route: 048
     Dates: start: 20110131
  43. PLAVIX [Concomitant]
     Active Substance: CLOPIDOGREL BISULFATE
     Route: 048
     Dates: start: 20110303
  44. GABAPENTIN. [Concomitant]
     Active Substance: GABAPENTIN
     Route: 048
     Dates: start: 20100310
  45. MUPIROCIN. [Concomitant]
     Active Substance: MUPIROCIN
     Dosage: APPLY SPARINGLY 3 TIMES DAILY
     Dates: start: 20110112
  46. FUROSEMIDE. [Concomitant]
     Active Substance: FUROSEMIDE
     Route: 048
     Dates: start: 20110909
  47. FUROSEMIDE. [Concomitant]
     Active Substance: FUROSEMIDE
     Route: 048
     Dates: start: 20110909
  48. GLIPIZIDE. [Concomitant]
     Active Substance: GLIPIZIDE
     Route: 048
     Dates: start: 20110711
  49. WARFARIN [Concomitant]
     Active Substance: WARFARIN
     Dosage: TAKE 4.5 MG BY MOUTH DAILY AS DIRECTED
     Route: 048
     Dates: start: 20110323
  50. VENTOLIN HFA INHALER [Concomitant]
     Dosage: INHALE 2 PUFFS BY MOUTH AS NEEDED UP TO 4 TIMES DAILY
     Route: 055
     Dates: start: 20110218
  51. LOSARTAN POTASSIUM. [Concomitant]
     Active Substance: LOSARTAN POTASSIUM
     Route: 048
     Dates: start: 20110616
  52. LOSARTAN POTASSIUM. [Concomitant]
     Active Substance: LOSARTAN POTASSIUM
     Route: 048
     Dates: start: 20110909
  53. PROMETHAZINE DM SYP [Concomitant]
     Indication: COUGH
     Dosage: TAKE 1 TEASPOONFUL EVERY 4 HOURS
     Dates: start: 20110616
  54. CRESTOR [Suspect]
     Active Substance: ROSUVASTATIN CALCIUM
     Route: 048
     Dates: start: 20100310
  55. CRESTOR [Suspect]
     Active Substance: ROSUVASTATIN CALCIUM
     Route: 048
     Dates: start: 20110628
  56. PLAVIX [Concomitant]
     Active Substance: CLOPIDOGREL BISULFATE
     Route: 048
     Dates: start: 20110429
  57. GABAPENTIN. [Concomitant]
     Active Substance: GABAPENTIN
     Route: 048
     Dates: start: 20110507
  58. COLACE [Concomitant]
     Active Substance: DOCUSATE SODIUM
     Dates: start: 20100310
  59. FOLIC ACID. [Concomitant]
     Active Substance: FOLIC ACID
     Route: 048
     Dates: start: 20110401, end: 20110627
  60. FUROSEMIDE. [Concomitant]
     Active Substance: FUROSEMIDE
     Route: 048
     Dates: start: 20110124, end: 20110909
  61. SERTRALINE HYDROCHLORIDE. [Concomitant]
     Active Substance: SERTRALINE HYDROCHLORIDE
     Route: 048
     Dates: start: 20110812
  62. RANITIDINE. [Concomitant]
     Active Substance: RANITIDINE
     Route: 048
     Dates: start: 20110324, end: 20110422
  63. SYMBICORT [Suspect]
     Active Substance: BUDESONIDE\FORMOTEROL FUMARATE DIHYDRATE
     Dosage: 160/4.5 UG INHALE 2 PUFFS TWICE A DAY
     Route: 055
     Dates: start: 20110523
  64. METOPROLOL. [Suspect]
     Active Substance: METOPROLOL
     Route: 048
     Dates: start: 20110811
  65. ZOLOFT [Concomitant]
     Active Substance: SERTRALINE HYDROCHLORIDE
     Dates: start: 20100310
  66. BUSPIRONE [Concomitant]
     Active Substance: BUSPIRONE HYDROCHLORIDE
     Route: 048
     Dates: start: 20100310
  67. LOSARTAN POTASSIUM. [Concomitant]
     Active Substance: LOSARTAN POTASSIUM
     Route: 048
     Dates: start: 20110222, end: 20110323
  68. PROMETHAZINE DM SYP [Concomitant]
     Indication: PULMONARY CONGESTION
     Dosage: TAKE 1 TEASPOONFUL EVERY 4 HOURS
     Dates: start: 20110616
  69. BUSPIRONE [Concomitant]
     Active Substance: BUSPIRONE HYDROCHLORIDE
     Route: 048
     Dates: start: 20110429
  70. ACTOS [Concomitant]
     Active Substance: PIOGLITAZONE HYDROCHLORIDE
     Dates: start: 20100310
  71. ASA/BUFFERS [Concomitant]
     Dates: start: 20100310
  72. FOLIC ACID. [Concomitant]
     Active Substance: FOLIC ACID
     Route: 048
     Dates: start: 20100310
  73. AMOXICILLIN. [Concomitant]
     Active Substance: AMOXICILLIN
     Route: 048
     Dates: start: 20110124
  74. WARFARIN [Concomitant]
     Active Substance: WARFARIN
     Dosage: TAKE 0.5 TABLET ONCE DAILY OR AS DIRECTED
     Route: 048
     Dates: start: 20110909, end: 20110909
  75. LOSARTAN POTASSIUM. [Concomitant]
     Active Substance: LOSARTAN POTASSIUM
     Route: 048
     Dates: start: 20110323
  76. ZOLPIDEM TARTRATE. [Concomitant]
     Active Substance: ZOLPIDEM TARTRATE
     Dosage: TAKE ONE TO TWO TABLETS AT BEDTIME AS NEEDED
     Dates: start: 20110324
  77. RANITIDINE. [Concomitant]
     Active Substance: RANITIDINE
     Route: 048
     Dates: start: 20110422
  78. DICYCLOMINE [Concomitant]
     Active Substance: DICYCLOMINE HYDROCHLORIDE
     Route: 048
     Dates: start: 20110802

REACTIONS (4)
  - Myocardial infarction [Recovering/Resolving]
  - Intentional product misuse [Unknown]
  - Wrong technique in product usage process [Unknown]
  - Device malfunction [Unknown]

NARRATIVE: CASE EVENT DATE: 20100310
